FAERS Safety Report 18900845 (Version 1)
Quarter: 2021Q1

REPORT INFORMATION
  Report Type: Spontaneous
  Country: GB (occurrence: GB)
  Receive Date: 20210217
  Receipt Date: 20210217
  Transmission Date: 20210420
  Serious: Yes (Other)
  Sender: FDA-Public Use
  Company Number: GB-JNJFOC-20210216586

PATIENT
  Age: 90 Year
  Sex: Female

DRUGS (7)
  1. ISOSORBIDE. [Concomitant]
     Active Substance: ISOSORBIDE
     Indication: ANGINA PECTORIS
     Route: 065
     Dates: start: 20000101
  2. ADCAL [CALCIUM CARBONATE] [Concomitant]
     Indication: MULTIPLE FRACTURES
     Route: 065
     Dates: start: 20100101
  3. PARACETAMOL [Suspect]
     Active Substance: ACETAMINOPHEN
     Indication: PRODUCT USED FOR UNKNOWN INDICATION
     Route: 065
  4. ASTRAZENECA COVID?19 VACCINE [Suspect]
     Active Substance: AZD-1222
     Indication: PRODUCT USED FOR UNKNOWN INDICATION
     Route: 065
     Dates: start: 20210108
  5. ASTRAZENECA COVID?19 VACCINE [Suspect]
     Active Substance: AZD-1222
     Route: 065
  6. BISODOL [Concomitant]
     Indication: HYPOTENSION
     Route: 065
     Dates: start: 20000101
  7. LEVOTHYROXINE. [Concomitant]
     Active Substance: LEVOTHYROXINE
     Indication: THYROID THERAPY
     Route: 065
     Dates: start: 20100101

REACTIONS (4)
  - Asthenia [Recovered/Resolved with Sequelae]
  - Influenza [Recovered/Resolved with Sequelae]
  - Cough [Unknown]
  - Food aversion [Recovering/Resolving]

NARRATIVE: CASE EVENT DATE: 20210109
